FAERS Safety Report 9425262 (Version 2)
Quarter: 2013Q3

REPORT INFORMATION
  Report Type: Spontaneous
  Country: GB (occurrence: None)
  Receive Date: 20130725
  Receipt Date: 20130729
  Transmission Date: 20140515
  Serious: Yes (Other)
  Sender: FDA-Public Use
  Company Number: AUR-APL-2013-06089

PATIENT
  Age: 55 Year
  Sex: Male
  Weight: 83.91 kg

DRUGS (2)
  1. METFORMIN (METFORMIN) [Suspect]
     Indication: DIABETES MELLITUS
     Route: 048
     Dates: start: 20120920, end: 20130520
  2. SIMVASTATIN (SIMVASTATIN) [Concomitant]

REACTIONS (1)
  - Amnesia [None]
